FAERS Safety Report 6779152-4 (Version None)
Quarter: 2010Q2

REPORT INFORMATION
  Report Type: 
  Country: None (occurrence: None)
  Receive Date: 20100618
  Receipt Date: 20100609
  Transmission Date: 20101027
  Serious: Yes (Hospitalization)
  Sender: FDA-Public Use
  Company Number: FR-ASTRAZENECA-2010SE27131

PATIENT
  Age: 12764 Day
  Sex: Female

DRUGS (21)
  1. NAROPIN [Suspect]
     Route: 065
     Dates: start: 20100517, end: 20100517
  2. PROPOFOL FRESENIUS [Suspect]
     Route: 042
     Dates: start: 20100517, end: 20100517
  3. ATRACURIUM HOSPIRA [Suspect]
     Route: 042
     Dates: start: 20100517, end: 20100517
  4. SUFENTA PRESERVATIVE FREE [Suspect]
     Route: 042
     Dates: start: 20100517, end: 20100517
  5. NEURONTIN [Suspect]
     Route: 048
     Dates: start: 20100516, end: 20100518
  6. NORMACOL [Suspect]
     Route: 054
     Dates: start: 20100516
  7. DEXAMETHASONE [Suspect]
     Route: 042
     Dates: start: 20100517, end: 20100517
  8. BETADINE [Suspect]
     Route: 003
     Dates: start: 20100517, end: 20100517
  9. EPHEDRINE AGUETTANT [Suspect]
     Route: 042
     Dates: start: 20100517, end: 20100517
  10. DROPERIDOL [Suspect]
     Route: 042
     Dates: start: 20100517, end: 20100519
  11. LOVENOX [Suspect]
     Dosage: 4000 IU
     Route: 058
     Dates: start: 20100516, end: 20100518
  12. KETAMINE HCL [Suspect]
     Dosage: 10 UG
     Route: 042
     Dates: start: 20100517, end: 20100517
  13. AUGMENTIN '125' [Suspect]
     Dosage: 2G PLUS 200 MG
     Route: 042
     Dates: start: 20100517, end: 20100517
  14. SEVORANE [Suspect]
     Route: 055
     Dates: start: 20100517, end: 20100517
  15. KALINOX [Suspect]
     Route: 055
     Dates: start: 20100517, end: 20100517
  16. NITROUS OXIDE [Concomitant]
  17. MORPHINE [Concomitant]
     Dates: start: 20100517, end: 20100519
  18. NEXIUM [Concomitant]
     Dates: start: 20100517, end: 20100518
  19. PERFALGAN [Concomitant]
     Dates: start: 20100517, end: 20100523
  20. ZOPHREN [Concomitant]
     Dates: start: 20100518
  21. ACUPAN [Concomitant]
     Dates: start: 20100518, end: 20100519

REACTIONS (4)
  - HAEMATURIA [None]
  - LYMPHOPENIA [None]
  - OLIGURIA [None]
  - RENAL FAILURE ACUTE [None]
